FAERS Safety Report 4583217-5 (Version None)
Quarter: 2005Q1

REPORT INFORMATION
  Report Type: 
  Country: None (occurrence: None)
  Receive Date: 20050215
  Receipt Date: 20041210
  Transmission Date: 20050727
  Serious: Yes (Hospitalization, Disabling)
  Sender: FDA-Public Use
  Company Number: DE-MERCK-0412DEU00107

PATIENT
  Age: 54 Year
  Sex: Female

DRUGS (11)
  1. VIOXX [Suspect]
     Indication: WHIPLASH INJURY
     Route: 048
     Dates: start: 20001101, end: 20030201
  2. VIOXX [Suspect]
     Indication: HEADACHE
     Route: 048
     Dates: start: 20001101, end: 20030201
  3. EPROSARTAN [Concomitant]
     Indication: HYPERTENSION
     Route: 065
     Dates: start: 19990101, end: 20030201
  4. VALSARTAN [Concomitant]
     Route: 065
  5. HYDROCHLOROTHIAZIDE AND TRIAMTERENE [Concomitant]
     Route: 065
  6. HOMEOPATHIC MEDICATIONS (UNSPECIFIED) [Concomitant]
     Route: 065
  7. TIBOLONE [Concomitant]
     Route: 065
  8. OMEPRAZOLE MAGNESIUM [Concomitant]
     Route: 065
  9. DICLOFENAC SODIUM [Concomitant]
     Route: 065
  10. FLUTICASONE PROPIONATE [Concomitant]
     Route: 065
  11. FENOTEROL HYDROBROMIDE AND IPRATROPIUM BROMIDE [Concomitant]
     Route: 065

REACTIONS (3)
  - CARDIAC FAILURE [None]
  - COUGH [None]
  - MYOCARDIAL INFARCTION [None]
